FAERS Safety Report 4546332-8 (Version None)
Quarter: 2005Q1

REPORT INFORMATION
  Report Type: 
  Country: None (occurrence: None)
  Receive Date: 20050103
  Receipt Date: 20041215
  Transmission Date: 20050727
  Serious: Yes (Other)
  Sender: FDA-Public Use
  Company Number: 2004117941

PATIENT
  Age: 67 Year
  Sex: Female
  Weight: 73.0291 kg

DRUGS (7)
  1. CELEBREX [Suspect]
     Indication: OSTEOARTHRITIS
     Dosage: ORAL
     Route: 048
  2. NEURONTIN [Suspect]
     Indication: NEURALGIA
     Dosage: ORAL
     Route: 048
     Dates: start: 20040101, end: 20040101
  3. SERTRALINE HYDROCHLORIDE [Concomitant]
  4. AMLODIPINE BESYLATE [Concomitant]
  5. ACETAMINOPHEN [Concomitant]
  6. DYAZIDE [Concomitant]
  7. LOTREL [Concomitant]

REACTIONS (12)
  - ARTHRITIS [None]
  - BURSITIS [None]
  - CONDITION AGGRAVATED [None]
  - CONTUSION [None]
  - COORDINATION ABNORMAL [None]
  - DRUG EFFECT DECREASED [None]
  - EXCORIATION [None]
  - FALL [None]
  - MUSCLE SPASMS [None]
  - NEURALGIA [None]
  - POST PROCEDURAL COMPLICATION [None]
  - SPINAL FUSION SURGERY [None]
